FAERS Safety Report 6908265-9 (Version None)
Quarter: 2010Q3

REPORT INFORMATION
  Report Type: 
  Country: None (occurrence: None)
  Receive Date: 20100805
  Receipt Date: 20100726
  Transmission Date: 20110219
  Serious: Yes (Life-Threatening, Disabling)
  Sender: FDA-Public Use
  Company Number: BR-WYE-H16451410

PATIENT
  Sex: Female

DRUGS (5)
  1. RAPAMUNE [Suspect]
     Dosage: UNSPECIFIED
     Route: 065
  2. SIMVASTATIN [Concomitant]
     Dosage: 10 MG
  3. OMEPRAZOLE [Concomitant]
     Dosage: 20 MG
  4. ACETYLSALICYLIC ACID SRT [Concomitant]
     Dosage: 100 MG
  5. MYCOPHENOLATE MOFETIL [Concomitant]
     Dosage: 720 MG

REACTIONS (2)
  - ALVEOLAR PROTEINOSIS [None]
  - PULMONARY MASS [None]
